FAERS Safety Report 22533310 (Version 1)
Quarter: 2023Q2

REPORT INFORMATION
  Report Type: Report from Study
  Country: NL (occurrence: NL)
  Receive Date: 20230607
  Receipt Date: 20230607
  Transmission Date: 20230722
  Serious: Yes (Other)
  Sender: FDA-Public Use
  Company Number: NL-ABBVIE-4279044

PATIENT
  Sex: Male

DRUGS (2)
  1. CARBIDOPA\LEVODOPA [Suspect]
     Active Substance: CARBIDOPA\LEVODOPA
     Indication: Parkinson^s disease
     Dosage: MD: 17.5ML, CD; 4.2ML/H, ED: 6.0ML?REMAINS AT 16 HOURS
     Route: 050
     Dates: start: 20210920
  2. CARBIDOPA\LEVODOPA [Suspect]
     Active Substance: CARBIDOPA\LEVODOPA
     Route: 050

REACTIONS (23)
  - Shoulder fracture [Recovering/Resolving]
  - Freezing phenomenon [Not Recovered/Not Resolved]
  - Extra dose administered [Not Recovered/Not Resolved]
  - Fall [Recovering/Resolving]
  - Therapeutic product effect delayed [Recovered/Resolved]
  - Wheelchair user [Not Recovered/Not Resolved]
  - Device physical property issue [Recovered/Resolved]
  - Therapeutic product effect incomplete [Recovered/Resolved]
  - Weight decreased [Recovered/Resolved]
  - Fear [Not Recovered/Not Resolved]
  - Arthralgia [Not Recovered/Not Resolved]
  - Limb discomfort [Not Recovered/Not Resolved]
  - Physical deconditioning [Not Recovered/Not Resolved]
  - Muscle rigidity [Not Recovered/Not Resolved]
  - Joint range of motion decreased [Not Recovered/Not Resolved]
  - Abnormal dreams [Not Recovered/Not Resolved]
  - On and off phenomenon [Not Recovered/Not Resolved]
  - Memory impairment [Not Recovered/Not Resolved]
  - Bradyphrenia [Not Recovered/Not Resolved]
  - Balance disorder [Recovering/Resolving]
  - Weight increased [Not Recovered/Not Resolved]
  - Nocturia [Not Recovered/Not Resolved]
  - Mobility decreased [Not Recovered/Not Resolved]
